FAERS Safety Report 7823408-0 (Version None)
Quarter: 2011Q4

REPORT INFORMATION
  Report Type: 
  Country: None (occurrence: None)
  Receive Date: 20111014
  Receipt Date: 20111005
  Transmission Date: 20120403
  Serious: Yes (Hospitalization)
  Sender: FDA-Public Use
  Company Number: 2011S1000073

PATIENT
  Age: 58 Year
  Sex: Male
  Weight: 73.0291 kg

DRUGS (11)
  1. COLCRYS [Concomitant]
  2. SOLU-MEDROL [Concomitant]
  3. ALLOPURINOL [Concomitant]
  4. LORTAB [Concomitant]
  5. NEXIUM [Concomitant]
  6. KRYSTEXXA [Suspect]
     Indication: GOUTY TOPHUS
     Dosage: ;X1; IV     8 MG; X1; IV   8 MG; X1; IV
     Route: 042
     Dates: start: 20110915, end: 20110915
  7. KRYSTEXXA [Suspect]
     Indication: GOUTY TOPHUS
     Dosage: ;X1; IV     8 MG; X1; IV   8 MG; X1; IV
     Route: 042
     Dates: start: 20110811, end: 20110811
  8. KRYSTEXXA [Suspect]
     Indication: GOUTY TOPHUS
     Dosage: ;X1; IV     8 MG; X1; IV   8 MG; X1; IV
     Route: 042
     Dates: start: 20110825, end: 20110825
  9. TYLENOL (CAPLET) [Concomitant]
  10. PREDNISONE [Concomitant]
  11. BENADRYL /00945501/ [Concomitant]

REACTIONS (23)
  - TONIC CONVULSION [None]
  - CARDIAC ARREST [None]
  - HYPERGLYCAEMIA [None]
  - RASH [None]
  - PYREXIA [None]
  - CYANOSIS [None]
  - ANAPHYLACTIC REACTION [None]
  - GASTROOESOPHAGEAL REFLUX DISEASE [None]
  - BURNING SENSATION [None]
  - LOSS OF CONSCIOUSNESS [None]
  - PRURITUS [None]
  - DRUG DOSE OMISSION [None]
  - CHOKING SENSATION [None]
  - BRUXISM [None]
  - URINARY INCONTINENCE [None]
  - ISCHAEMIC HEPATITIS [None]
  - PULSELESS ELECTRICAL ACTIVITY [None]
  - HEPATIC FUNCTION ABNORMAL [None]
  - THERAPEUTIC RESPONSE DECREASED [None]
  - VOMITING [None]
  - CORONARY ARTERY DISEASE [None]
  - NAUSEA [None]
  - ACUTE PRERENAL FAILURE [None]
